FAERS Safety Report 25431020 (Version 5)
Quarter: 2025Q4

REPORT INFORMATION
  Report Type: Spontaneous
  Country: US (occurrence: None)
  Receive Date: 20250612
  Receipt Date: 20251204
  Transmission Date: 20260118
  Serious: Yes (Hospitalization, Other)
  Sender: UCB
  Company Number: US-UCBSA-2025030221

PATIENT
  Age: 89 Year
  Weight: 77.098 kg

DRUGS (2)
  1. CIMZIA [Suspect]
     Active Substance: CERTOLIZUMAB PEGOL
     Indication: Rheumatoid arthritis
     Dosage: 400 MILLIGRAM, EV 4 WEEKS
  2. CIMZIA [Suspect]
     Active Substance: CERTOLIZUMAB PEGOL
     Dosage: 400 MILLIGRAM, EV 4 WEEKS

REACTIONS (9)
  - Infection [Unknown]
  - Surgery [Unknown]
  - Nephrolithiasis [Unknown]
  - Injury [Unknown]
  - Allergy to vaccine [Unknown]
  - Dizziness [Unknown]
  - Asthenia [Unknown]
  - Urinary tract infection [Unknown]
  - Intentional dose omission [Unknown]
